FAERS Safety Report 5125243-3 (Version None)
Quarter: 2006Q4

REPORT INFORMATION
  Report Type: 
  Country: None (occurrence: None)
  Receive Date: 20061010
  Receipt Date: 20061010
  Transmission Date: 20070319
  Serious: Yes (Hospitalization)
  Sender: FDA-Public Use
  Company Number: None

PATIENT
  Age: 48 Year
  Sex: Male

DRUGS (7)
  1. CODEINE [Suspect]
     Indication: PAIN
     Dosage: 30 MG BID
     Dates: start: 20020701
  2. RANITIDINE [Concomitant]
  3. TOPIRAMATE [Concomitant]
  4. LOVASTATIN [Concomitant]
  5. PAROXETINE HCL [Concomitant]
  6. OMEPRAZOLE [Concomitant]
  7. URSODIOL [Concomitant]

REACTIONS (1)
  - ILEUS PARALYTIC [None]
